FAERS Safety Report 18751896 (Version 7)
Quarter: 2022Q1

REPORT INFORMATION
  Report Type: Report from Study
  Country: MX (occurrence: MX)
  Receive Date: 20210118
  Receipt Date: 20220330
  Transmission Date: 20220424
  Serious: Yes (Other)
  Sender: FDA-Public Use
  Company Number: NVSC2021MX008640

PATIENT
  Age: 50 Year
  Sex: Female

DRUGS (4)
  1. TASIGNA [Suspect]
     Active Substance: NILOTINIB
     Indication: Chronic myeloid leukaemia
     Dosage: 4 (200MG), QD
     Route: 048
     Dates: start: 2009, end: 202010
  2. TASIGNA [Suspect]
     Active Substance: NILOTINIB
     Dosage: 4 (200MG), QD
     Route: 048
     Dates: start: 202010
  3. TASIGNA [Suspect]
     Active Substance: NILOTINIB
     Dosage: 400 MG, Q12H
     Route: 048
     Dates: start: 2009
  4. TASIGNA [Suspect]
     Active Substance: NILOTINIB
     Dosage: UNK, QD
     Route: 048

REACTIONS (19)
  - Hypothyroidism [Not Recovered/Not Resolved]
  - COVID-19 [Recovered/Resolved]
  - Oxygen saturation decreased [Recovered/Resolved]
  - Pyrexia [Recovered/Resolved]
  - Cough [Recovered/Resolved]
  - Headache [Not Recovered/Not Resolved]
  - Dizziness [Recovering/Resolving]
  - Blood thyroid stimulating hormone decreased [Recovering/Resolving]
  - Vertigo [Recovering/Resolving]
  - Fatigue [Unknown]
  - COVID-19 [Unknown]
  - Oropharyngeal pain [Unknown]
  - Abdominal pain [Unknown]
  - Oxygen saturation abnormal [Unknown]
  - Pyrexia [Recovered/Resolved]
  - Nasopharyngitis [Recovered/Resolved]
  - Product physical issue [Unknown]
  - Product quality issue [Unknown]
  - Product prescribing error [Not Recovered/Not Resolved]

NARRATIVE: CASE EVENT DATE: 20190601
